FAERS Safety Report 4434033-6 (Version None)
Quarter: 2004Q3

REPORT INFORMATION
  Report Type: 
  Country: None (occurrence: None)
  Receive Date: 20040825
  Receipt Date: 20040811
  Transmission Date: 20050211
  Serious: No
  Sender: FDA-Public Use
  Company Number: GBS040815351

PATIENT
  Age: 18 Year
  Sex: Male

DRUGS (1)
  1. ZYPREXA [Suspect]
     Indication: SCHIZOPHRENIA, PARANOID TYPE
     Dosage: 10 MG DAY
     Dates: start: 20040705

REACTIONS (4)
  - BUNDLE BRANCH BLOCK LEFT [None]
  - ELECTROCARDIOGRAM T WAVE ABNORMAL [None]
  - SINUS ARRHYTHMIA [None]
  - SINUS BRADYCARDIA [None]
